FAERS Safety Report 4981610-X (Version None)
Quarter: 2006Q2

REPORT INFORMATION
  Report Type: 
  Country: None (occurrence: None)
  Receive Date: 20060425
  Receipt Date: 20060413
  Transmission Date: 20061013
  Serious: Yes (Hospitalization, Other)
  Sender: FDA-Public Use
  Company Number: PHEH2006US04931

PATIENT
  Sex: Female

DRUGS (11)
  1. DESFERAL [Suspect]
  2. METOPROLOL TARTRATE [Concomitant]
  3. LASIX [Suspect]
     Dosage: 40 MG, UNK
  4. ALDACTONE [Suspect]
     Dosage: 25 MG, UNK
  5. LEVOTHYROXINE SODIUM [Concomitant]
  6. OMEPRAZOLE [Concomitant]
     Dosage: 20 MG, Q12H
  7. LORAZEPAM [Concomitant]
     Dosage: 2 MG, UNK
  8. PERCOCET [Concomitant]
     Dosage: 10 MG, UNK
  9. WARFARIN SODIUM [Concomitant]
  10. NOVOLOG [Concomitant]
  11. INSULIN [Concomitant]

REACTIONS (3)
  - BLOOD CREATININE INCREASED [None]
  - RENAL FAILURE ACUTE [None]
  - URINARY TRACT INFECTION [None]
